FAERS Safety Report 8825275 (Version 1)
Quarter: 2012Q4

REPORT INFORMATION
  Report Type: 
  Country: US (occurrence: US)
  Receive Date: 20121004
  Receipt Date: 20121004
  Transmission Date: 20130627
  Serious: Yes (Other)
  Sender: FDA-Public Use
  Company Number: US-ROCHE-1131374

PATIENT
  Sex: Male

DRUGS (7)
  1. RITUXAN [Suspect]
     Indication: IDIOPATHIC THROMBOCYTOPENIC PURPURA
     Route: 065
     Dates: start: 20020411
  2. RITUXAN [Suspect]
     Indication: OFF LABEL USE
  3. CARDIZEM [Concomitant]
  4. AVAPRO [Concomitant]
  5. LASIX [Concomitant]
     Route: 065
  6. FLOMAX [Concomitant]
  7. CLARITIN [Concomitant]

REACTIONS (4)
  - Chronic myelomonocytic leukaemia [Unknown]
  - Asthenia [Recovering/Resolving]
  - Productive cough [Not Recovered/Not Resolved]
  - Oedema peripheral [Not Recovered/Not Resolved]
